FAERS Safety Report 15286552 (Version 2)
Quarter: 2018Q3

REPORT INFORMATION
  Report Type: Spontaneous
  Country: FR (occurrence: FR)
  Receive Date: 20180816
  Receipt Date: 20180823
  Transmission Date: 20181010
  Serious: Yes (Hospitalization)
  Sender: FDA-Public Use
  Company Number: PHHY2018FR071721

PATIENT
  Age: 15 Year
  Sex: Male
  Weight: 110 kg

DRUGS (6)
  1. OGASTORO [Suspect]
     Active Substance: LANSOPRAZOLE
     Indication: POISONING DELIBERATE
     Dosage: 105 MG, (TOTAL)
     Route: 048
     Dates: start: 20180606, end: 20180606
  2. RISPERIDONE. [Suspect]
     Active Substance: RISPERIDONE
     Indication: POISONING DELIBERATE
     Dosage: 40 MG, UNK (TOTAL)
     Route: 048
     Dates: start: 20180606, end: 20180606
  3. DESLORATADINE. [Suspect]
     Active Substance: DESLORATADINE
     Indication: POISONING DELIBERATE
     Dosage: 75 MG, UNK (TOTAL)
     Route: 048
     Dates: start: 20180606, end: 20180606
  4. LANSOPRAZOLE. [Suspect]
     Active Substance: LANSOPRAZOLE
     Indication: POISONING DELIBERATE
     Dosage: 105 MG, TOTAL
     Route: 048
     Dates: start: 20180606, end: 20180606
  5. SERETIDE [Suspect]
     Active Substance: FLUTICASONE PROPIONATE\SALMETEROL XINAFOATE
     Indication: POISONING DELIBERATE
     Dosage: UNK (NON PR?CIS?E)
     Route: 055
  6. PYOSTACINE [Suspect]
     Active Substance: PRISTINAMYCIN
     Indication: POISONING DELIBERATE
     Dosage: 4000 MG, UNK (TOTAL)
     Route: 048
     Dates: start: 20180606, end: 20180606

REACTIONS (3)
  - Blood creatine phosphokinase increased [Recovered/Resolved]
  - Myoglobin blood increased [Recovered/Resolved]
  - Somnolence [Recovered/Resolved]

NARRATIVE: CASE EVENT DATE: 20180606
